FAERS Safety Report 6585494-8 (Version None)
Quarter: 2010Q1

REPORT INFORMATION
  Report Type: 
  Country: None (occurrence: None)
  Receive Date: 20100217
  Receipt Date: 20100211
  Transmission Date: 20100710
  Serious: Yes (Hospitalization, Other)
  Sender: FDA-Public Use
  Company Number: US-MERCK-0909USA01531

PATIENT
  Age: 67 Year
  Sex: Female
  Weight: 50 kg

DRUGS (4)
  1. FOSAMAX [Suspect]
     Indication: OSTEOPOROSIS
     Route: 048
     Dates: start: 20030701, end: 20040612
  2. PAMIDRONATE DISODIUM [Suspect]
     Route: 065
  3. ACTONEL [Suspect]
     Indication: OSTEOPOROSIS
     Route: 048
     Dates: start: 20030101
  4. ESTROGENS (UNSPECIFIED) [Concomitant]
     Indication: POSTMENOPAUSE
     Route: 065
     Dates: start: 20000101, end: 20050101

REACTIONS (37)
  - ABDOMINAL DISCOMFORT [None]
  - ABSCESS [None]
  - ADVERSE EVENT [None]
  - ANXIETY [None]
  - ARTHRALGIA [None]
  - ARTHRITIS [None]
  - BINGE EATING [None]
  - BONE PAIN [None]
  - BRUXISM [None]
  - CERVICAL SPINAL STENOSIS [None]
  - CHONDROCALCINOSIS PYROPHOSPHATE [None]
  - DENTAL CARIES [None]
  - DEPRESSION [None]
  - DRUG HYPERSENSITIVITY [None]
  - DYSPHAGIA [None]
  - FALL [None]
  - FRACTURE [None]
  - GASTROINTESTINAL DISORDER [None]
  - GINGIVITIS [None]
  - GOUT [None]
  - GRIEF REACTION [None]
  - OESOPHAGEAL PAIN [None]
  - ORAL DISORDER [None]
  - OSTEOARTHRITIS [None]
  - OSTEONECROSIS [None]
  - RESTLESS LEGS SYNDROME [None]
  - ROTATOR CUFF SYNDROME [None]
  - SPINAL COMPRESSION FRACTURE [None]
  - SPINAL DISORDER [None]
  - SPINAL FRACTURE [None]
  - SPONDYLOLISTHESIS [None]
  - SUICIDAL IDEATION [None]
  - SYNCOPE [None]
  - THERAPEUTIC RESPONSE DECREASED [None]
  - THORACIC VERTEBRAL FRACTURE [None]
  - TOOTH ABSCESS [None]
  - UPPER LIMB FRACTURE [None]
